FAERS Safety Report 18590604 (Version 12)
Quarter: 2021Q3

REPORT INFORMATION
  Report Type: Report from Study
  Country: JP (occurrence: JP)
  Receive Date: 20201208
  Receipt Date: 20210902
  Transmission Date: 20211014
  Serious: Yes (Hospitalization)
  Sender: FDA-Public Use
  Company Number: JP-EISAI MEDICAL RESEARCH-EC-2020-084861

PATIENT
  Age: 76 Year
  Sex: Male
  Weight: 38.4 kg

DRUGS (23)
  1. PEMBROLIZUMAB. [Suspect]
     Active Substance: PEMBROLIZUMAB
     Indication: NON-SMALL CELL LUNG CANCER METASTATIC
     Route: 041
     Dates: start: 20200908, end: 20201111
  2. DIART [Concomitant]
     Dates: start: 20201021, end: 20201202
  3. CARBOCISTEINE [Concomitant]
     Active Substance: CARBOCYSTEINE
     Dates: start: 202008, end: 20201202
  4. LENVATINIB [Suspect]
     Active Substance: LENVATINIB
     Indication: NON-SMALL CELL LUNG CANCER METASTATIC
     Route: 048
     Dates: start: 20200908
  5. PEMBROLIZUMAB. [Suspect]
     Active Substance: PEMBROLIZUMAB
     Route: 041
     Dates: start: 20201202, end: 20201202
  6. PEMBROLIZUMAB. [Suspect]
     Active Substance: PEMBROLIZUMAB
     Route: 041
     Dates: start: 20201223
  7. ONON [Concomitant]
     Active Substance: PRANLUKAST
     Dates: start: 202008, end: 20201202
  8. FENTOS [Concomitant]
     Active Substance: FENTANYL
     Dates: start: 20201021, end: 20210404
  9. REBAMIPIDE [Concomitant]
     Active Substance: REBAMIPIDE
     Dates: start: 20200907
  10. SPIROPENT [Concomitant]
     Active Substance: CLENBUTEROL HYDROCHLORIDE
     Dates: start: 202008, end: 20201202
  11. FLUTIDE [Concomitant]
     Dates: start: 20201020
  12. HIRUDOID [Concomitant]
     Active Substance: GLYCOSAMINOGLYCANS
     Route: 061
     Dates: start: 20201201
  13. DERMOVATE [Concomitant]
     Active Substance: CLOBETASOL
     Dates: start: 20201201, end: 202102
  14. MEPTIN AIR [Concomitant]
     Active Substance: PROCATEROL HYDROCHLORIDE
     Dates: start: 20200930
  15. THYRADIN [Concomitant]
     Active Substance: LEVOTHYROXINE
     Dates: start: 20201117, end: 20201202
  16. CALONAL [Concomitant]
     Active Substance: ACETAMINOPHEN
     Dates: start: 20200831, end: 20201202
  17. OXINORM [Concomitant]
     Dates: start: 20200909
  18. FLUTIDE [Concomitant]
     Dates: start: 202008
  19. NAIXAN [Concomitant]
     Active Substance: NAPROXEN SODIUM
     Dates: start: 20200923
  20. THEOLONG [Concomitant]
     Active Substance: THEOPHYLLINE ANHYDROUS
     Dates: start: 202008, end: 20201202
  21. FELBINAC PAP [Concomitant]
     Dates: start: 20200904
  22. RANMARK [Concomitant]
     Active Substance: DENOSUMAB
     Dates: start: 20201202, end: 20201202
  23. AZUNOL [Concomitant]
     Dates: start: 20201013, end: 20201201

REACTIONS (1)
  - Large intestinal ulcer [Recovered/Resolved]

NARRATIVE: CASE EVENT DATE: 20201203
